FAERS Safety Report 15173266 (Version 1)
Quarter: 2018Q3

REPORT INFORMATION
  Report Type: Spontaneous
  Country: DE (occurrence: DE)
  Receive Date: 20180720
  Receipt Date: 20180720
  Transmission Date: 20181010
  Serious: Yes (Hospitalization)
  Sender: FDA-Public Use
  Company Number: DE-MYLANLABS-2018M1053312

PATIENT
  Age: 25 Year
  Sex: Female

DRUGS (2)
  1. TRAMADOL. [Suspect]
     Active Substance: TRAMADOL
     Indication: PRODUCT USED FOR UNKNOWN INDICATION
     Dosage: 100 MG, NK
  2. ORTOTON                            /00047901/ [Interacting]
     Active Substance: METHOCARBAMOL
     Indication: PRODUCT USED FOR UNKNOWN INDICATION
     Dosage: 750 MG, 1?1?0?0

REACTIONS (5)
  - Labelled drug-drug interaction medication error [Unknown]
  - Pallor [Unknown]
  - Dizziness [Unknown]
  - Drug prescribing error [Unknown]
  - Presyncope [Unknown]

NARRATIVE: CASE EVENT DATE: 20151010
